FAERS Safety Report 10112244 (Version 1)
Quarter: 2014Q2

REPORT INFORMATION
  Report Type: Spontaneous
  Country: US (occurrence: US)
  Receive Date: 20140425
  Receipt Date: 20140425
  Transmission Date: 20141212
  Serious: No
  Sender: FDA-Public Use
  Company Number: US-ASTRAZENECA-2014SE07771

PATIENT
  Age: 63 Year
  Sex: Female

DRUGS (1)
  1. PRILOSEC OTC [Suspect]
     Route: 048
     Dates: start: 20131214, end: 20140108

REACTIONS (11)
  - Cough [Recovering/Resolving]
  - Chest pain [Recovered/Resolved]
  - Gastric pH increased [Unknown]
  - Chest discomfort [Recovered/Resolved]
  - Viral infection [Unknown]
  - Bacterial infection [Unknown]
  - Malaise [Recovered/Resolved]
  - Dry mouth [Recovered/Resolved]
  - Dyspepsia [Recovered/Resolved]
  - Dysgeusia [Recovered/Resolved]
  - Weight decreased [Not Recovered/Not Resolved]
